FAERS Safety Report 19155686 (Version 2)
Quarter: 2021Q2

REPORT INFORMATION
  Report Type: Spontaneous
  Country: US (occurrence: US)
  Receive Date: 20210419
  Receipt Date: 20210531
  Transmission Date: 20210717
  Serious: Yes (Other)
  Sender: FDA-Public Use
  Company Number: US-TEVA-2021-US-1902545

PATIENT
  Sex: Female
  Weight: 107.6 kg

DRUGS (46)
  1. XELODA [Suspect]
     Active Substance: CAPECITABINE
     Dosage: TAKE WITH WATER, WITHIN 30 MINUTES OF A MEAL. TOTAL DAILY DOSE IS 1650 MG/M2 (825 MG.M2 BID).
     Route: 048
     Dates: start: 20170627, end: 20170725
  2. DIAZEPAM. [Concomitant]
     Active Substance: DIAZEPAM
     Indication: ANXIETY
     Route: 048
     Dates: start: 201003, end: 201904
  3. MULTIVITAMIN [Concomitant]
     Active Substance: VITAMINS
     Route: 048
     Dates: start: 20170505, end: 20170613
  4. MULTIVITAMIN [Concomitant]
     Active Substance: VITAMINS
     Route: 048
     Dates: start: 20190605
  5. VITAMIN E [Concomitant]
     Active Substance: .ALPHA.-TOCOPHEROL
     Route: 048
     Dates: start: 20170505, end: 20170613
  6. VALSARTAN HCTZ ? AUROBINDO [Suspect]
     Active Substance: HYDROCHLOROTHIAZIDE\VALSARTAN
     Dosage: 160/12.5 MG
     Route: 065
     Dates: start: 20170131, end: 20170417
  7. VALSARTAN HCTZ ? SOLCO HEALTHCARE [Suspect]
     Active Substance: HYDROCHLOROTHIAZIDE\VALSARTAN
     Indication: HYPERTENSION
     Dosage: 160/12.5 MG
     Route: 065
     Dates: start: 20180201, end: 20180503
  8. XELODA [Suspect]
     Active Substance: CAPECITABINE
     Dosage: THREE TABLETS IN MORNING AND FOUR TABLETS IN EVENING DURING RADIATION TREATMENT.
     Route: 048
     Dates: start: 20170801, end: 20170913
  9. ATORVASTATIN [Concomitant]
     Active Substance: ATORVASTATIN
     Indication: HYPERLIPIDAEMIA
     Route: 065
  10. CYANOCOBALAMIN. [Concomitant]
     Active Substance: CYANOCOBALAMIN
     Route: 048
     Dates: start: 20170627, end: 20170725
  11. ZOFRAN [Concomitant]
     Active Substance: ONDANSETRON HYDROCHLORIDE
     Dosage: EVERY 6 HOURS
     Route: 048
     Dates: start: 20190605
  12. TYLENOL WITH CODEINE [Concomitant]
     Active Substance: ACETAMINOPHEN\CODEINE PHOSPHATE
     Indication: BACK PAIN
     Dosage: 300/30 MG
     Route: 048
     Dates: start: 20170613
  13. VALSARTAN HCTZ ? AUROBINDO [Suspect]
     Active Substance: HYDROCHLOROTHIAZIDE\VALSARTAN
     Indication: HYPERTENSION
     Dosage: 160/12.5 MG
     Route: 065
     Dates: start: 20130703, end: 20140206
  14. LOSARTAN HCTZ ? NORTHSTAR LLC [Suspect]
     Active Substance: HYDROCHLOROTHIAZIDE\LOSARTAN
     Indication: HYPERTENSION
     Dosage: 100/12.5 MG
     Route: 065
     Dates: start: 20180724, end: 20190506
  15. XELODA [Suspect]
     Active Substance: CAPECITABINE
     Dosage: TAKE WITH WATER, WITHIN 30 MINUTES OF A MEAL. TOTAL DAILY DOSE IS 1650 MG/M2 (825 MG.M2 BID).
     Route: 048
     Dates: start: 20170613
  16. CYANOCOBALAMIN. [Concomitant]
     Active Substance: CYANOCOBALAMIN
     Route: 048
     Dates: start: 20190605
  17. VALSARTAN W/HYDROCHLOROTHIAZIDE [Suspect]
     Active Substance: HYDROCHLOROTHIAZIDE\VALSARTAN
     Indication: HYPERTENSION
     Dosage: 160/12.5 MG
     Route: 065
     Dates: start: 20140310, end: 20140812
  18. VALSARTAN HCTZ ? MYLAN [Suspect]
     Active Substance: HYDROCHLOROTHIAZIDE\VALSARTAN
     Indication: HYPERTENSION
     Dosage: 160/12.5MG
     Route: 065
     Dates: start: 20121127, end: 20130603
  19. MULTIVITAMIN [Concomitant]
     Active Substance: VITAMINS
     Route: 048
     Dates: start: 20170801, end: 20170913
  20. CYANOCOBALAMIN. [Concomitant]
     Active Substance: CYANOCOBALAMIN
     Route: 048
     Dates: start: 20170505, end: 20170613
  21. VITAMIN E [Concomitant]
     Active Substance: .ALPHA.-TOCOPHEROL
     Route: 048
     Dates: start: 20170801, end: 20170913
  22. VITAMIN E [Concomitant]
     Active Substance: .ALPHA.-TOCOPHEROL
     Route: 048
     Dates: start: 20190605
  23. ZOFRAN [Concomitant]
     Active Substance: ONDANSETRON HYDROCHLORIDE
     Dosage: EVERY 6 HOURS
     Route: 048
     Dates: start: 20170627, end: 20170725
  24. TYLENOL WITH CODEINE [Concomitant]
     Active Substance: ACETAMINOPHEN\CODEINE PHOSPHATE
     Dosage: 300/30 MG
     Route: 048
     Dates: start: 20170627, end: 20170725
  25. VALSARTAN HCTZ ? MYLAN [Suspect]
     Active Substance: HYDROCHLOROTHIAZIDE\VALSARTAN
     Dosage: 160/12.5
     Route: 065
     Dates: start: 20141210, end: 20150310
  26. VALSARTAN HCTZ ? ALEMBIC PHARMA [Suspect]
     Active Substance: HYDROCHLOROTHIAZIDE\VALSARTAN
     Indication: HYPERTENSION
     Dosage: 160/12.5 MG
     Route: 065
     Dates: start: 20190605, end: 20191206
  27. AMLODIPINE [Concomitant]
     Active Substance: AMLODIPINE BESYLATE
     Indication: HYPERTENSION
     Route: 065
  28. VITAMIN E [Concomitant]
     Active Substance: .ALPHA.-TOCOPHEROL
     Route: 048
     Dates: start: 20170627, end: 20170725
  29. ZOFRAN [Concomitant]
     Active Substance: ONDANSETRON HYDROCHLORIDE
     Dosage: EVERY 6 HOURS
     Route: 048
     Dates: start: 20170801, end: 20170913
  30. NORCO [Concomitant]
     Active Substance: ACETAMINOPHEN\HYDROCODONE BITARTRATE
     Dosage: 10/325 MG, EVERY 6 HOURS
     Route: 048
     Dates: start: 20190605
  31. KLOR?CON [Concomitant]
     Active Substance: POTASSIUM CHLORIDE
     Route: 048
     Dates: start: 20170801, end: 20170913
  32. LOMOTIL [Concomitant]
     Active Substance: ATROPINE SULFATE\DIPHENOXYLATE HYDROCHLORIDE
     Dosage: 2.5/0.25 MG
     Route: 048
     Dates: start: 20190605
  33. DIOVAN [Concomitant]
     Active Substance: VALSARTAN
     Indication: HYPERTENSION
     Dosage: 160/12.5 MG
     Route: 065
     Dates: start: 201003, end: 201210
  34. CYANOCOBALAMIN. [Concomitant]
     Active Substance: CYANOCOBALAMIN
     Route: 048
     Dates: start: 20170801, end: 20170913
  35. NORCO [Concomitant]
     Active Substance: ACETAMINOPHEN\HYDROCODONE BITARTRATE
     Dosage: 10/325 MG, EVERY 6 HOURS
     Route: 048
     Dates: start: 20170801, end: 20170913
  36. VALSARTAN HCTZ ? AUROBINDO [Suspect]
     Active Substance: HYDROCHLOROTHIAZIDE\VALSARTAN
     Dosage: 160/12.5 MG
     Route: 065
     Dates: start: 20150226, end: 20150529
  37. VALSARTAN HCTZ ? MACLEODS [Suspect]
     Active Substance: HYDROCHLOROTHIAZIDE\VALSARTAN
     Indication: HYPERTENSION
     Dosage: 160/12.5 MG
     Route: 065
     Dates: start: 20170721, end: 20180105
  38. XELODA [Suspect]
     Active Substance: CAPECITABINE
     Dosage: TAKE WITH WATER, WITHIN 30 MINUTES OF A MEAL. TOTAL DAILY DOSE IS 1650 MG/M2 (825 MG.M2 BID).
     Route: 048
     Dates: start: 20190605
  39. NORCO [Concomitant]
     Active Substance: ACETAMINOPHEN\HYDROCODONE BITARTRATE
     Indication: PAIN
     Dosage: 10/325 MG, EVERY 6 HOURS
     Route: 048
     Dates: start: 20170724, end: 20170725
  40. LOMOTIL [Concomitant]
     Active Substance: ATROPINE SULFATE\DIPHENOXYLATE HYDROCHLORIDE
     Dosage: 2.5/0.25 MG
     Route: 048
     Dates: start: 20170822, end: 20170913
  41. VALSARTAN W/HYDROCHLOROTHIAZIDE [Suspect]
     Active Substance: HYDROCHLOROTHIAZIDE\VALSARTAN
     Dosage: 160/12.5 MG
     Route: 065
     Dates: start: 20150917, end: 20170103
  42. VALSARTAN HCTZ ? AUROBINDO [Suspect]
     Active Substance: HYDROCHLOROTHIAZIDE\VALSARTAN
     Dosage: 160/12.5 MG
     Route: 065
     Dates: start: 20140911, end: 20141210
  43. MULTIVITAMIN [Concomitant]
     Active Substance: VITAMINS
     Route: 048
     Dates: start: 20170627, end: 20170725
  44. ZOFRAN [Concomitant]
     Active Substance: ONDANSETRON HYDROCHLORIDE
     Dosage: EVERY 6 HOURS
     Route: 048
     Dates: start: 20170505, end: 20170613
  45. TYLENOL WITH CODEINE [Concomitant]
     Active Substance: ACETAMINOPHEN\CODEINE PHOSPHATE
     Dosage: 300/30 MG
     Route: 048
     Dates: start: 20170801, end: 20170822
  46. KLOR?CON [Concomitant]
     Active Substance: POTASSIUM CHLORIDE
     Route: 048
     Dates: start: 20190605

REACTIONS (5)
  - Rectal cancer stage III [Unknown]
  - Incontinence [Unknown]
  - Rectal haemorrhage [Unknown]
  - Dyspnoea [Unknown]
  - Fatigue [Unknown]
